FAERS Safety Report 15277522 (Version 1)
Quarter: 2018Q3

REPORT INFORMATION
  Report Type: Spontaneous
  Country: TW (occurrence: TW)
  Receive Date: 20180814
  Receipt Date: 20180814
  Transmission Date: 20181010
  Serious: Yes (Other)
  Sender: FDA-Public Use
  Company Number: TW-BAYER-2018-148485

PATIENT
  Age: 42 Year
  Sex: Male

DRUGS (3)
  1. PEMBROLIZUMAB. [Concomitant]
     Active Substance: PEMBROLIZUMAB
     Dosage: 100 MG, UNK EVERY THREE WEEKS
  2. SORAFENIB (RAF KINASE INHIBITOR) [Suspect]
     Active Substance: SORAFENIB
     Indication: HEPATOCELLULAR CARCINOMA
     Dosage: 200 MG, QD
  3. SORAFENIB (RAF KINASE INHIBITOR) [Suspect]
     Active Substance: SORAFENIB
     Indication: HEPATOCELLULAR CARCINOMA
     Dosage: 400 MG, BID

REACTIONS (5)
  - Palmar-plantar erythrodysaesthesia syndrome [None]
  - Drug ineffective [None]
  - Hepatocellular carcinoma [None]
  - Abdominal lymphadenopathy [None]
  - Alpha 1 foetoprotein increased [None]
